FAERS Safety Report 23487569 (Version 2)
Quarter: 2024Q1

REPORT INFORMATION
  Report Type: Spontaneous
  Country: MX (occurrence: MX)
  Receive Date: 20240206
  Receipt Date: 20240322
  Transmission Date: 20240410
  Serious: Yes (Hospitalization, Other)
  Sender: FDA-Public Use
  Company Number: MX-002147023-NVSC2024MX024825

PATIENT
  Sex: Male
  Weight: 53 kg

DRUGS (11)
  1. OXCARBAZEPINE [Suspect]
     Active Substance: OXCARBAZEPINE
     Indication: Epilepsy
     Dosage: 3 DOSAGE FORM, QD (600 MG)
     Route: 048
     Dates: start: 2020
  2. TRILEPTAL [Suspect]
     Active Substance: OXCARBAZEPINE
     Indication: Epilepsy
     Dosage: 600 MG, BID (1 IN THE  MORNING AND  AT NIGHT)
     Route: 048
     Dates: start: 2011, end: 2016
  3. TRILEPTAL [Suspect]
     Active Substance: OXCARBAZEPINE
     Dosage: 600 MG, Q8H (EVERY 8 HOURS)
     Route: 048
     Dates: start: 2016, end: 2020
  4. TRILEPTAL [Suspect]
     Active Substance: OXCARBAZEPINE
     Dosage: 300 MG, QD (300 MG, IN THE AFTERNOON)
     Route: 048
     Dates: start: 2014, end: 2016
  5. CLOBAZAM [Concomitant]
     Active Substance: CLOBAZAM
     Indication: Seizure
     Dosage: 10 MG, BID
     Route: 048
     Dates: start: 20110308
  6. CLOBAZAM [Concomitant]
     Active Substance: CLOBAZAM
     Indication: Epilepsy
  7. KEPPRA [Concomitant]
     Active Substance: LEVETIRACETAM
     Indication: Epilepsy
     Dosage: 1 G, Q12H
     Route: 048
     Dates: start: 2013, end: 2021
  8. PISARPEK [Concomitant]
     Indication: Epilepsy
     Dosage: 1 G, Q8H
     Route: 048
     Dates: start: 2021, end: 202311
  9. LEVETIRACETAM [Concomitant]
     Active Substance: LEVETIRACETAM
     Indication: Epilepsy
     Dosage: UNK (IN THE  MORNING, IN  THE AFTERNOON AND AT NIGHT)
     Route: 048
     Dates: start: 202311
  10. CANNABIDIOL [Concomitant]
     Active Substance: CANNABIDIOL
     Indication: Product used for unknown indication
     Dosage: UNK (3 OF 6000) (DROP)
     Route: 048
     Dates: start: 202311
  11. MELATONIN [Concomitant]
     Active Substance: MELATONIN
     Indication: Product used for unknown indication
     Dosage: UNK, QD (1)
     Route: 065
     Dates: start: 202311

REACTIONS (7)
  - Seizure [Recovered/Resolved]
  - Epilepsy [Unknown]
  - Seizure [Recovered/Resolved]
  - Loss of consciousness [Unknown]
  - Hippocampal sclerosis [Unknown]
  - Joint stiffness [Unknown]
  - Off label use [Unknown]

NARRATIVE: CASE EVENT DATE: 20200101
